FAERS Safety Report 10098940 (Version 3)
Quarter: 2014Q3

REPORT INFORMATION
  Report Type: Spontaneous
  Country: US (occurrence: US)
  Receive Date: 20140423
  Receipt Date: 20140811
  Transmission Date: 20150326
  Serious: Yes (Other)
  Sender: FDA-Public Use
  Company Number: US-BAYER-2014-058206

PATIENT
  Age: 20 Year
  Sex: Female
  Weight: 54.88 kg

DRUGS (7)
  1. IBUPROFEN. [Concomitant]
     Active Substance: IBUPROFEN
     Indication: PAIN
     Dosage: 400-600 MG TOOK MEDICATION FOR THE TWENTY DAY PERIOD BEFORE THE ONSET OF INJURIES
  2. YAZ [Suspect]
     Active Substance: DROSPIRENONE\ETHINYL ESTRADIOL
     Indication: PREMENSTRUAL SYNDROME
  3. ADVIL [Concomitant]
     Active Substance: IBUPROFEN
     Dosage: 400-600MG TOOK MEDICATION FOR THE TWENTY DAY PERIOD BEFORE THE ONSET OF INJURIES
  4. ST. JOHNS WORT [Concomitant]
     Active Substance: HYPERICUM PERFORATUM
     Dosage: 1-2 PILLS TOOK MEDICATION FOR THE TWENTY DAY PERIOD BEFORE THE ONSET OF INJURIES
  5. YAZ [Suspect]
     Active Substance: DROSPIRENONE\ETHINYL ESTRADIOL
     Indication: PREMENSTRUAL DYSPHORIC DISORDER
     Dosage: UNK
     Dates: start: 2007
  6. ADDERALL [Concomitant]
     Active Substance: AMPHETAMINE ASPARTATE\AMPHETAMINE SULFATE\DEXTROAMPHETAMINE SACCHARATE\DEXTROAMPHETAMINE SULFATE
  7. YAZ [Suspect]
     Active Substance: DROSPIRENONE\ETHINYL ESTRADIOL
     Indication: ACNE

REACTIONS (6)
  - Thrombophlebitis superficial [None]
  - Embolism arterial [None]
  - Injury [None]
  - Pain [None]
  - Emotional distress [None]
  - Thrombosis [None]

NARRATIVE: CASE EVENT DATE: 2009
